FAERS Safety Report 13843029 (Version 1)
Quarter: 2017Q3

REPORT INFORMATION
  Report Type: Spontaneous
  Country: US (occurrence: US)
  Receive Date: 20170808
  Receipt Date: 20170808
  Transmission Date: 20171127
  Serious: Yes (Death)
  Sender: FDA-Public Use
  Company Number: None

PATIENT
  Age: 75 Year
  Sex: Female

DRUGS (14)
  1. LEVOTHYROXINE. [Concomitant]
     Active Substance: LEVOTHYROXINE
  2. PANTOPRAZOLE [Concomitant]
     Active Substance: PANTOPRAZOLE
  3. DIGITEK [Concomitant]
     Active Substance: DIGOXIN
  4. CAPECITABINE 500MG TEVA [Suspect]
     Active Substance: CAPECITABINE
     Dosage: 3 QAM AND 4 QPM 14 DAYS, 7 DAYS OFF ORAL
     Route: 048
  5. TOLTERODINE ER [Concomitant]
  6. GABAPENTIN. [Concomitant]
     Active Substance: GABAPENTIN
  7. COLACE [Concomitant]
     Active Substance: DOCUSATE SODIUM
  8. ELIQUIS [Concomitant]
     Active Substance: APIXABAN
  9. APAP [Concomitant]
     Active Substance: ACETAMINOPHEN
  10. DULOXETINE. [Concomitant]
     Active Substance: DULOXETINE
  11. ZOFRAN [Concomitant]
     Active Substance: ONDANSETRON HYDROCHLORIDE
  12. FENTANYL. [Concomitant]
     Active Substance: FENTANYL
  13. HALDOL [Concomitant]
     Active Substance: HALOPERIDOL
  14. VITAMIN D3 [Concomitant]
     Active Substance: CHOLECALCIFEROL

REACTIONS (1)
  - Death [None]
